FAERS Safety Report 8145044-1 (Version None)
Quarter: 2012Q1

REPORT INFORMATION
  Report Type: 
  Country: None (occurrence: None)
  Receive Date: 20120217
  Receipt Date: 20120210
  Transmission Date: 20120608
  Serious: Yes (Other)
  Sender: FDA-Public Use
  Company Number: PHEH2009US10830

PATIENT
  Sex: Female

DRUGS (25)
  1. SYMBICORT [Concomitant]
  2. OXYCODONE HCL [Concomitant]
  3. ARIMIDEX [Concomitant]
  4. CARBOPLATIN [Concomitant]
  5. CISPLATIN [Concomitant]
  6. CLINDAMYCIN [Concomitant]
  7. GEMZAR [Concomitant]
  8. ZOMETA [Suspect]
     Indication: METASTASES TO BONE
     Dosage: 4 MG, UNK
     Route: 042
     Dates: start: 20040101
  9. ZOMETA [Suspect]
     Indication: BREAST CANCER METASTATIC
  10. FEMARA [Concomitant]
     Dosage: 2.5 MG, DAILY
     Route: 048
  11. NAPROXEN [Concomitant]
  12. ZOCOR [Concomitant]
  13. ORAL CONTRACEPTIVE NOS [Concomitant]
  14. TAXOL [Concomitant]
  15. CIPROFLOXACIN [Concomitant]
  16. TAMOXIFEN CITRATE [Concomitant]
  17. CEPHALEXIN [Concomitant]
  18. KEFLEX [Concomitant]
     Dosage: 500 MG, TID
  19. PENICILLIN [Concomitant]
  20. DIOVAN [Concomitant]
  21. XOPENEX [Concomitant]
     Dosage: 0.63 MG, BID
  22. AMBIEN [Concomitant]
  23. METFORMIN HCL [Concomitant]
  24. LISINOPRIL [Concomitant]
  25. FASLODEX [Concomitant]

REACTIONS (58)
  - ATELECTASIS [None]
  - EXPOSED BONE IN JAW [None]
  - UPPER LIMB FRACTURE [None]
  - NEOPLASM MALIGNANT [None]
  - INTERVERTEBRAL DISC SPACE NARROWING [None]
  - VISUAL ACUITY REDUCED [None]
  - BRONCHITIS [None]
  - ARTHRALGIA [None]
  - BRONCHIAL HYPERREACTIVITY [None]
  - ARTERIOSCLEROSIS [None]
  - LYMPHADENOPATHY MEDIASTINAL [None]
  - GRANULOMA [None]
  - PAIN IN JAW [None]
  - SINUSITIS [None]
  - BURSITIS [None]
  - ROAD TRAFFIC ACCIDENT [None]
  - NOCTURIA [None]
  - OEDEMA PERIPHERAL [None]
  - FALL [None]
  - MUSCLE STRAIN [None]
  - CONDUCTION DISORDER [None]
  - EYE IRRITATION [None]
  - BURNS SECOND DEGREE [None]
  - JOINT EFFUSION [None]
  - INSOMNIA [None]
  - OSTEONECROSIS OF JAW [None]
  - BONE MARROW OEDEMA [None]
  - ACQUIRED DIAPHRAGMATIC EVENTRATION [None]
  - OESOPHAGITIS [None]
  - NEOPLASM PROGRESSION [None]
  - NECK PAIN [None]
  - JOINT DISLOCATION [None]
  - SPINAL OSTEOARTHRITIS [None]
  - ADRENAL DISORDER [None]
  - PERIODONTITIS [None]
  - GINGIVAL INFECTION [None]
  - IRITIS [None]
  - PRODUCTIVE COUGH [None]
  - INTRAOCULAR MELANOMA [None]
  - DYSPNOEA [None]
  - ELECTROCARDIOGRAM T WAVE ABNORMAL [None]
  - ANAEMIA [None]
  - PAIN [None]
  - TOOTH LOSS [None]
  - BONE LESION [None]
  - CONTUSION [None]
  - BREAST CALCIFICATIONS [None]
  - FIBROMYALGIA [None]
  - TOOTHACHE [None]
  - GINGIVAL OEDEMA [None]
  - ANXIETY [None]
  - HUMERUS FRACTURE [None]
  - PLEURAL FIBROSIS [None]
  - OSTEOMYELITIS [None]
  - TRISMUS [None]
  - ARTHRITIS [None]
  - HYPERCHOLESTEROLAEMIA [None]
  - FATIGUE [None]
